FAERS Safety Report 14307131 (Version 1)
Quarter: 2017Q4

REPORT INFORMATION
  Report Type: Spontaneous
  Country: US (occurrence: US)
  Receive Date: 20171220
  Receipt Date: 20171220
  Transmission Date: 20180321
  Serious: No
  Sender: FDA-Public Use
  Company Number: US-TEVA-823080ACC

PATIENT
  Sex: Male

DRUGS (8)
  1. LEVOFLOXACIN 250MG [Concomitant]
     Active Substance: LEVOFLOXACIN
     Dosage: 1 DOSAGE FORMS DAILY;
  2. METOPROLOL SUCCINATE 25 MG [Concomitant]
     Active Substance: METOPROLOL SUCCINATE
     Dosage: 1 DOSAGE FORMS DAILY;
  3. OMEPRAZOLE MAGNESIUM DELAYED RELEASE CAPSULES OTC 20.6 MG- KROGER 28 C [Suspect]
     Active Substance: OMEPRAZOLE MAGNESIUM
     Route: 048
  4. ATORVASTATIN 40MG [Concomitant]
     Active Substance: ATORVASTATIN
     Dosage: 1 DOSAGE FORMS DAILY;
  5. METRONIDAZOLE. [Suspect]
     Active Substance: METRONIDAZOLE
     Dosage: 3 DOSAGE FORMS DAILY;
  6. ATORVASTATIN 20MG [Concomitant]
     Active Substance: ATORVASTATIN
     Dosage: 1 DOSAGE FORMS DAILY;
  7. PROCHLORPERAZINE 10MG [Concomitant]
     Indication: NAUSEA
     Dosage: 4 DOSAGE FORMS DAILY;
  8. TRIUMEQ [Concomitant]
     Active Substance: ABACAVIR SULFATE\DOLUTEGRAVIR SODIUM\LAMIVUDINE

REACTIONS (3)
  - Regurgitation [Unknown]
  - Nausea [Recovered/Resolved]
  - Dizziness [Recovered/Resolved]
